FAERS Safety Report 4773422-7 (Version None)
Quarter: 2005Q3

REPORT INFORMATION
  Report Type: 
  Country: None (occurrence: None)
  Receive Date: 20050920
  Receipt Date: 20050908
  Transmission Date: 20060218
  Serious: Yes (Other)
  Sender: FDA-Public Use
  Company Number: US-JNJFOC-20050600572

PATIENT
  Sex: Female
  Weight: 81.19 kg

DRUGS (9)
  1. REMICADE [Suspect]
     Indication: RHEUMATOID ARTHRITIS
     Route: 042
  2. LORTAB [Suspect]
  3. LORTAB [Suspect]
     Indication: PAIN
  4. XANAX [Suspect]
     Indication: TOBACCO ABUSE
  5. LEXAPRO [Concomitant]
  6. ARAVA [Concomitant]
  7. CRESTOR [Concomitant]
  8. PROTONIX [Concomitant]
  9. SYNTHROID [Concomitant]

REACTIONS (10)
  - BALANCE DISORDER [None]
  - DRUG WITHDRAWAL SYNDROME [None]
  - DYSARTHRIA [None]
  - FATIGUE [None]
  - FEELING ABNORMAL [None]
  - MEMORY IMPAIRMENT [None]
  - OEDEMA PERIPHERAL [None]
  - PARAESTHESIA [None]
  - SLEEP DISORDER [None]
  - WEIGHT INCREASED [None]
